FAERS Safety Report 5935295-6 (Version None)
Quarter: 2008Q4

REPORT INFORMATION
  Report Type: 
  Country: None (occurrence: None)
  Receive Date: 20081030
  Receipt Date: 20081020
  Transmission Date: 20090506
  Serious: Yes (Death, Life-Threatening, Other)
  Sender: FDA-Public Use
  Company Number: GB-JNJFOC-20081005130

PATIENT
  Age: 59 Year
  Sex: Female
  Weight: 69 kg

DRUGS (7)
  1. REMICADE [Suspect]
     Indication: RHEUMATOID ARTHRITIS
     Route: 042
  2. METHOTREXATE [Concomitant]
  3. PREDNISOLONE [Concomitant]
  4. FOLIC ACID [Concomitant]
  5. MELOXICAN [Concomitant]
  6. ANTI-TNF [Concomitant]
  7. PREMIQUE [Concomitant]

REACTIONS (1)
  - LUNG NEOPLASM MALIGNANT [None]
